FAERS Safety Report 5776519-8 (Version None)
Quarter: 2008Q2

REPORT INFORMATION
  Report Type: 
  Country: None (occurrence: None)
  Receive Date: 20080616
  Receipt Date: 20080527
  Transmission Date: 20081010
  Serious: Yes (Hospitalization)
  Sender: FDA-Public Use
  Company Number: GXKR2008IT05215

PATIENT
  Sex: Female

DRUGS (1)
  1. FUROSEMIDE [Suspect]

REACTIONS (1)
  - CARDIAC FAILURE [None]
